FAERS Safety Report 4853738-6 (Version None)
Quarter: 2005Q4

REPORT INFORMATION
  Report Type: 
  Country: None (occurrence: None)
  Receive Date: 20051212
  Receipt Date: 20051201
  Transmission Date: 20060501
  Serious: Yes (Hospitalization)
  Sender: FDA-Public Use
  Company Number: TPA2005A00986

PATIENT
  Age: 59 Year
  Sex: Female
  Weight: 76.2043 kg

DRUGS (14)
  1. ACTOS [Suspect]
     Indication: DIABETES MELLITUS NON-INSULIN-DEPENDENT
     Dosage: 30 MG, 1 IN 1 D, PER ORAL
     Route: 048
     Dates: start: 20041117
  2. CARTIA XT (DILTIAZEM) (240 MILLIGRAM) [Concomitant]
  3. ZETIA (EZETIMIBE) (10 MILLIGRAM) [Concomitant]
  4. LIPITOR [Concomitant]
  5. SYNTHROID (LEVOTHYROXINE SODIUM) (0.15 MILLIGRAM) [Concomitant]
  6. ASPIRIN (ACETYLSALICYLIC ACID) (81 MILLIGRAM) [Concomitant]
  7. FLUOXETINE (FLUOXETINE) (10 MILLIGRAM) [Concomitant]
  8. ALPRAZOLAM (ALPRAZOLAM) (0.5 MILLIGRAM) [Concomitant]
  9. FUROSEMIDE [Concomitant]
  10. ACTONEL (RISEDRONATE SODIUM) (35 MILLIGRAM) [Concomitant]
  11. NITROGLYCERIN (NITROGLYCERIN COMP.) (TABLETS) [Concomitant]
  12. PRILOSEC (OMEPRAZOLE) (20 MILLIGRAM) [Concomitant]
  13. TOPAMAX [Concomitant]
  14. DURADRIN (ISOCOM) [Concomitant]

REACTIONS (7)
  - ANGINA UNSTABLE [None]
  - GASTROOESOPHAGEAL REFLUX DISEASE [None]
  - HEADACHE [None]
  - NEPHROLITHIASIS [None]
  - PERIPHERAL VASCULAR DISORDER [None]
  - SHOULDER PAIN [None]
  - TREMOR [None]
